FAERS Safety Report 7437493-1 (Version None)
Quarter: 2011Q2

REPORT INFORMATION
  Report Type: 
  Country: None (occurrence: None)
  Receive Date: 20110426
  Receipt Date: 20110414
  Transmission Date: 20111010
  Serious: Yes (Hospitalization)
  Sender: FDA-Public Use
  Company Number: GB-SANOFI-AVENTIS-2011SA011626

PATIENT
  Age: 71 Year
  Sex: Male
  Weight: 100 kg

DRUGS (14)
  1. SPIRONOLACTONE [Concomitant]
  2. BISOPROLOL FUMARATE [Concomitant]
     Dates: start: 20101001
  3. CANDESARTAN CILEXETIL [Concomitant]
  4. SOTALOL HCL [Concomitant]
     Dates: end: 20101001
  5. DOXAZOSIN [Concomitant]
  6. ALLOPURINOL [Concomitant]
  7. OMACOR [Concomitant]
  8. METFORMIN [Concomitant]
  9. MULTAQ [Suspect]
     Route: 048
     Dates: start: 20101004, end: 20101010
  10. FINASTERIDE [Concomitant]
  11. GAVISCON [Concomitant]
  12. ATORVASTATIN [Concomitant]
  13. WARFARIN SODIUM [Concomitant]
  14. DIGOXIN [Concomitant]

REACTIONS (4)
  - BLOOD CREATININE INCREASED [None]
  - RENAL FAILURE ACUTE [None]
  - CARDIOACTIVE DRUG LEVEL INCREASED [None]
  - HYPERKALAEMIA [None]
